FAERS Safety Report 4588420-6 (Version None)
Quarter: 2005Q1

REPORT INFORMATION
  Report Type: 
  Country: None (occurrence: None)
  Receive Date: 20050216
  Receipt Date: 20050204
  Transmission Date: 20050727
  Serious: Yes (Death)
  Sender: FDA-Public Use
  Company Number: 05DEN0042

PATIENT
  Age: 72 Year
  Sex: Male

DRUGS (5)
  1. AGGRASTAT [Suspect]
     Indication: ACUTE CORONARY SYNDROME
     Dosage: 450 MG/30 MIN
     Dates: start: 20040901, end: 20040901
  2. REOPRO [Suspect]
     Indication: CORONARY ANGIOPLASTY
     Dosage: 0,25 MG/KG BOLUS; 10UG/MIN THERAAFTER
     Dates: start: 20040901, end: 20040901
  3. ACETYLSALICYLATE LYSINE (ACETYLSALICYLATE LYSINE) (500 MILLIGRAM) [Concomitant]
  4. ISCOVER (CLOPIDOGREL SULFATE (600 MILLIGRAM) [Concomitant]
  5. HEPARIN (HEPARIN) (5000 IU ( INTERNATIONAL UNIT) 5000 IU [Concomitant]

REACTIONS (12)
  - CEREBRAL HAEMORRHAGE [None]
  - HAEMODYNAMIC INSTABILITY [None]
  - HAEMOGLOBIN DECREASED [None]
  - HAEMORRHAGE [None]
  - HYPOVOLAEMIC SHOCK [None]
  - INTESTINAL HAEMORRHAGE [None]
  - INTRA-ABDOMINAL HAEMORRHAGE [None]
  - POST PROCEDURAL COMPLICATION [None]
  - PULMONARY HAEMORRHAGE [None]
  - RETROPERITONEAL HAEMORRHAGE [None]
  - SOFT TISSUE HAEMORRHAGE [None]
  - SPLENIC HAEMORRHAGE [None]
